FAERS Safety Report 9180230 (Version 1)
Quarter: 2013Q1

REPORT INFORMATION
  Report Type: Spontaneous
  Country: US (occurrence: US)
  Receive Date: 20130322
  Receipt Date: 20130322
  Transmission Date: 20140127
  Serious: Yes (Death)
  Sender: FDA-Public Use
  Company Number: US-AMGEN-USASP2013018452

PATIENT
  Age: 64 Year
  Sex: Male

DRUGS (2)
  1. NEULASTA [Suspect]
     Indication: NEUTROPENIA
     Dosage: 6 MG, MONTHLY
     Dates: start: 201210, end: 201212
  2. XGEVA [Suspect]
     Indication: LUNG CANCER METASTATIC
     Dosage: 120 MG, EVERY 4 WEEKS
     Dates: start: 20121002, end: 20130204

REACTIONS (1)
  - Lung neoplasm malignant [Fatal]
